FAERS Safety Report 14453969 (Version 1)
Quarter: 2018Q1

REPORT INFORMATION
  Report Type: Spontaneous
  Country: US (occurrence: US)
  Receive Date: 20180129
  Receipt Date: 20180129
  Transmission Date: 20180509
  Serious: Yes (Hospitalization, Other)
  Sender: FDA-Public Use
  Company Number: US-009507513-1112USA01243

PATIENT
  Sex: Female
  Weight: 65.32 kg

DRUGS (6)
  1. ALENDRONATE SODIUM. [Suspect]
     Active Substance: ALENDRONATE SODIUM
     Indication: OSTEOPOROSIS
  2. ALENDRONATE SODIUM. [Suspect]
     Active Substance: ALENDRONATE SODIUM
     Indication: OSTEOPOROSIS
  3. FOSAMAX [Suspect]
     Active Substance: ALENDRONATE SODIUM
     Indication: OSTEOPOROSIS
     Dosage: 70 MG, QD
     Route: 048
  4. FOSAMAX [Suspect]
     Active Substance: ALENDRONATE SODIUM
     Indication: OSTEOPENIA
     Dosage: 70 MG, QW
     Route: 048
     Dates: start: 20010621, end: 201003
  5. ALENDRONATE SODIUM. [Suspect]
     Active Substance: ALENDRONATE SODIUM
     Indication: OSTEOPENIA
     Dosage: 70 MG, QW
     Route: 048
     Dates: start: 20080612, end: 201004
  6. ALENDRONATE SODIUM. [Suspect]
     Active Substance: ALENDRONATE SODIUM
     Indication: OSTEOPENIA
     Dosage: 70 MG, QW
     Route: 048
     Dates: start: 20080826, end: 201003

REACTIONS (31)
  - Irritable bowel syndrome [Unknown]
  - Diarrhoea [Unknown]
  - Migraine [Unknown]
  - Haemorrhoids [Unknown]
  - Muscle strain [Unknown]
  - Chest pain [Recovered/Resolved]
  - Back pain [Unknown]
  - Groin pain [Unknown]
  - Deafness neurosensory [Unknown]
  - Stress [Unknown]
  - Blood triglycerides increased [Unknown]
  - Anxiety disorder [Unknown]
  - Depression [Unknown]
  - Bone disorder [Unknown]
  - Allergy to arthropod bite [Unknown]
  - Bursitis [Unknown]
  - Fall [Unknown]
  - Plantar fasciitis [Unknown]
  - Pain in extremity [Unknown]
  - Femur fracture [Recovered/Resolved]
  - Overdose [Unknown]
  - Tooth disorder [Unknown]
  - Gastritis [Unknown]
  - Labyrinthitis [Unknown]
  - Rhinitis allergic [Unknown]
  - Muscle strain [Unknown]
  - Blood cholesterol increased [Unknown]
  - Limb injury [Unknown]
  - Psoriasis [Unknown]
  - Tongue neoplasm benign [Unknown]
  - Arthralgia [Unknown]

NARRATIVE: CASE EVENT DATE: 20010712
